FAERS Safety Report 23576665 (Version 2)
Quarter: 2024Q1

REPORT INFORMATION
  Report Type: Report from Study
  Country: GB (occurrence: GB)
  Receive Date: 20240228
  Receipt Date: 20240301
  Transmission Date: 20240410
  Serious: Yes (Death, Hospitalization, Other)
  Sender: FDA-Public Use
  Company Number: GB-IPSEN Group, Research and Development-2022-34276

PATIENT
  Age: 76 Year
  Sex: Male

DRUGS (3)
  1. LANREOTIDE ACETATE [Suspect]
     Active Substance: LANREOTIDE ACETATE
     Indication: Neuroendocrine tumour
     Dates: start: 20221115
  2. LANREOTIDE ACETATE [Suspect]
     Active Substance: LANREOTIDE ACETATE
     Dosage: 120MG/0.5ML SOLUTION FOR INJECTION
     Route: 058
  3. LANREOTIDE ACETATE [Suspect]
     Active Substance: LANREOTIDE ACETATE
     Route: 065

REACTIONS (9)
  - Death [Fatal]
  - Fall [Unknown]
  - Asthenia [Recovered/Resolved]
  - Somnolence [Recovered/Resolved]
  - Contusion [Unknown]
  - General physical health deterioration [Unknown]
  - Mobility decreased [Unknown]
  - Gait inability [Unknown]
  - Off label use [Unknown]

NARRATIVE: CASE EVENT DATE: 20230704
